FAERS Safety Report 6770541-0 (Version None)
Quarter: 2010Q2

REPORT INFORMATION
  Report Type: 
  Country: None (occurrence: None)
  Receive Date: 20100615
  Receipt Date: 20100608
  Transmission Date: 20101027
  Serious: Yes (Other)
  Sender: FDA-Public Use
  Company Number: US-BAYER-201015491NA

PATIENT
  Age: 52 Year
  Sex: Female

DRUGS (12)
  1. MAGNEVIST [Suspect]
     Indication: NUCLEAR MAGNETIC RESONANCE IMAGING
     Dates: start: 20070807, end: 20070807
  2. OMNISCAN [Suspect]
     Indication: NUCLEAR MAGNETIC RESONANCE IMAGING
     Dates: start: 20050811, end: 20050811
  3. OMNISCAN [Suspect]
     Dates: start: 20090903, end: 20090903
  4. OPTIMARK [Suspect]
     Indication: NUCLEAR MAGNETIC RESONANCE IMAGING
  5. MULTIHANCE [Suspect]
     Indication: NUCLEAR MAGNETIC RESONANCE IMAGING
  6. PROHANCE [Suspect]
     Indication: NUCLEAR MAGNETIC RESONANCE IMAGING
  7. UNSPECIFIED GADOLINIUM CONTRAST BASED AGENT [Suspect]
     Indication: NUCLEAR MAGNETIC RESONANCE IMAGING
     Dates: start: 20001019, end: 20001019
  8. UNSPECIFIED GADOLINIUM CONTRAST BASED AGENT [Suspect]
     Dates: start: 20020330, end: 20020330
  9. UNSPECIFIED GADOLINIUM CONTRAST BASED AGENT [Suspect]
     Dates: start: 20040521, end: 20040521
  10. UNSPECIFIED GADOLINIUM CONTRAST BASED AGENT [Suspect]
     Dates: start: 20060306, end: 20060306
  11. UNSPECIFIED GADOLINIUM CONTRAST BASED AGENT [Suspect]
     Dates: start: 20070624, end: 20070624
  12. UNSPECIFIED GADOLINIUM CONTRAST BASED AGENT [Suspect]
     Dates: start: 20071218, end: 20071218

REACTIONS (16)
  - DEFORMITY [None]
  - ERYTHEMA [None]
  - FIBROSIS [None]
  - GENERAL PHYSICAL HEALTH DETERIORATION [None]
  - JOINT STIFFNESS [None]
  - JOINT SWELLING [None]
  - MOBILITY DECREASED [None]
  - NEPHROGENIC SYSTEMIC FIBROSIS [None]
  - OEDEMA PERIPHERAL [None]
  - PAIN [None]
  - PAIN OF SKIN [None]
  - SCAR [None]
  - SKIN EXFOLIATION [None]
  - SKIN FIBROSIS [None]
  - SKIN HYPERTROPHY [None]
  - SKIN TIGHTNESS [None]
